FAERS Safety Report 6638699-1 (Version None)
Quarter: 2010Q1

REPORT INFORMATION
  Report Type: 
  Country: None (occurrence: None)
  Receive Date: 20100316
  Receipt Date: 20100316
  Transmission Date: 20100710
  Serious: Yes (Hospitalization)
  Sender: FDA-Public Use
  Company Number: None

PATIENT
  Age: 32 Year
  Sex: Female
  Weight: 65.7716 kg

DRUGS (1)
  1. REGLAN [Suspect]
     Indication: IMPAIRED GASTRIC EMPTYING
     Dates: start: 20030101, end: 20090531

REACTIONS (4)
  - DYSPHEMIA [None]
  - HYPOTENSION [None]
  - THYROID DISORDER [None]
  - TREMOR [None]
